FAERS Safety Report 5312493-6 (Version None)
Quarter: 2007Q2

REPORT INFORMATION
  Report Type: 
  Country: None (occurrence: None)
  Receive Date: 20070430
  Receipt Date: 20070103
  Transmission Date: 20071010
  Serious: No
  Sender: FDA-Public Use
  Company Number: 2007UW00189

PATIENT
  Age: 43 Year
  Sex: Female
  Weight: 53.5 kg

DRUGS (11)
  1. NEXIUM [Suspect]
     Indication: HIATUS HERNIA
     Route: 048
     Dates: end: 20061101
  2. NEXIUM [Suspect]
     Indication: GASTROOESOPHAGEAL REFLUX DISEASE
     Route: 048
     Dates: end: 20061101
  3. PROPRANOLOL [Concomitant]
  4. ZONEGRAN [Concomitant]
  5. TRILEPTAL [Concomitant]
  6. SYNTHROID [Concomitant]
  7. SAESONIQUE [Concomitant]
  8. FOSAMAX [Concomitant]
  9. ZOMIG [Concomitant]
  10. VITAMIN D [Concomitant]
  11. IBUPROFEN [Concomitant]

REACTIONS (1)
  - PROTEIN TOTAL DECREASED [None]
